FAERS Safety Report 25573849 (Version 1)
Quarter: 2025Q3

REPORT INFORMATION
  Report Type: Spontaneous
  Country: US (occurrence: US)
  Receive Date: 20250717
  Receipt Date: 20250717
  Transmission Date: 20251021
  Serious: Yes (Hospitalization)
  Sender: ABBVIE
  Company Number: US-ABBVIE-6375017

PATIENT
  Age: 56 Year
  Sex: Male

DRUGS (1)
  1. IRON DEXTRAN [Suspect]
     Active Substance: IRON DEXTRAN
     Indication: Iron deficiency anaemia
     Route: 042

REACTIONS (2)
  - Cutaneous vasculitis [Recovered/Resolved]
  - Flushing [Recovered/Resolved]
